FAERS Safety Report 8926939 (Version 1)
Quarter: 2012Q4

REPORT INFORMATION
  Report Type: 
  Country: US (occurrence: US)
  Receive Date: 20121127
  Receipt Date: 20121127
  Transmission Date: 20130627
  Serious: Yes (Other)
  Sender: FDA-Public Use
  Company Number: US-BAYER-2012-121495

PATIENT
  Sex: Female

DRUGS (11)
  1. AVELOX [Suspect]
  2. ASA [Concomitant]
     Dosage: 81 mg, PRN
  3. ZOLOFT [Concomitant]
     Dosage: 1 1/2 tabs
     Route: 048
  4. LISINOPRIL [Concomitant]
     Dosage: 20 mg, BID
     Route: 048
  5. IBUPROFEN [Concomitant]
     Indication: ARTHRITIS
     Dosage: 800 mg, 3 times a day PRN
     Route: 048
  6. METFORMIN [Concomitant]
     Dosage: 1000 mg, BID
     Route: 048
  7. SYMBICORT [Concomitant]
     Dosage: 160/4.5 MDI 1 inhalation, BID
  8. ATENOLOL [Concomitant]
     Dosage: 25 mg, QD
     Route: 048
  9. LORAZEPAM [Concomitant]
     Dosage: 1/2 to 1 DF, HS, PRN
     Route: 048
  10. VENTOLIN [Concomitant]
     Dosage: MDI CFC free 90mcg/inh aerosol with adapter 2 puffs inhaled
  11. LIPITOR [Concomitant]
     Dosage: 40 mg, QD
     Route: 048

REACTIONS (1)
  - Drug hypersensitivity [None]
